FAERS Safety Report 9637526 (Version 3)
Quarter: 2014Q1

REPORT INFORMATION
  Report Type: Report from Study
  Country: US (occurrence: US)
  Receive Date: 20131022
  Receipt Date: 20140224
  Transmission Date: 20141002
  Serious: Yes (Hospitalization, Other)
  Sender: FDA-Public Use
  Company Number: PHHO2010US14572

PATIENT
  Age: 66 Year
  Sex: Male

DRUGS (2)
  1. SOM230 [Suspect]
     Indication: PANCREATIC CARCINOMA
     Dosage: 900 UG, BID
     Route: 058
     Dates: start: 20100920
  2. ANALGESICS [Concomitant]

REACTIONS (3)
  - Hyperglycaemia [Recovered/Resolved]
  - Gastric haemorrhage [Recovered/Resolved]
  - Anastomotic haemorrhage [Recovered/Resolved]
